FAERS Safety Report 13536894 (Version 1)
Quarter: 2017Q2

REPORT INFORMATION
  Report Type: Spontaneous
  Country: US (occurrence: US)
  Receive Date: 20170511
  Receipt Date: 20170511
  Transmission Date: 20170830
  Serious: No
  Sender: FDA-Public Use
  Company Number: None

PATIENT
  Age: 66 Year
  Sex: Female
  Weight: 105.24 kg

DRUGS (1)
  1. CAPECITABINE 500MG TABLETS TEVA [Suspect]
     Active Substance: CAPECITABINE
     Indication: BREAST CANCER
     Route: 048
     Dates: start: 20161224, end: 20170413

REACTIONS (6)
  - Skin discolouration [None]
  - Onychoclasis [None]
  - Pain in extremity [None]
  - Swelling [None]
  - Peripheral swelling [None]
  - Skin fissures [None]

NARRATIVE: CASE EVENT DATE: 20170315
